FAERS Safety Report 17075956 (Version 3)
Quarter: 2020Q2

REPORT INFORMATION
  Report Type: Spontaneous
  Country: US (occurrence: US)
  Receive Date: 20191126
  Receipt Date: 20200527
  Transmission Date: 20200713
  Serious: Yes (Other)
  Sender: FDA-Public Use
  Company Number: US-GILEAD-2019-0439500

PATIENT
  Age: 63 Year
  Sex: Male

DRUGS (36)
  1. VIREAD [Suspect]
     Active Substance: TENOFOVIR DISOPROXIL FUMARATE
     Dosage: UNK
     Route: 048
     Dates: start: 200408, end: 200509
  2. BUPROPION. [Concomitant]
     Active Substance: BUPROPION
  3. ZOLPIDEM [Concomitant]
     Active Substance: ZOLPIDEM TARTRATE
  4. OMEPRAZOLE. [Concomitant]
     Active Substance: OMEPRAZOLE
  5. CALCIUM [Concomitant]
     Active Substance: CALCIUM
  6. LAMIVUDINE. [Concomitant]
     Active Substance: LAMIVUDINE
  7. METOCLOPRAMIDE. [Concomitant]
     Active Substance: METOCLOPRAMIDE
  8. NORVIR [Concomitant]
     Active Substance: RITONAVIR
  9. TRUVADA [Suspect]
     Active Substance: EMTRICITABINE\TENOFOVIR DISOPROXIL FUMARATE
     Dosage: UNK
     Route: 048
     Dates: start: 20100126
  10. SUSTIVA [Concomitant]
     Active Substance: EFAVIRENZ
  11. EFAVIRENZ + EMTRICITABINE + TENOFOVIR DISOPROXIL FUMARATE [Concomitant]
     Active Substance: EFAVIRENZ\EMTRICITABINE\TENOFOVIR DISOPROXIL FUMARATE
  12. LEVITRA [Concomitant]
     Active Substance: VARDENAFIL HYDROCHLORIDE
  13. VIREAD [Suspect]
     Active Substance: TENOFOVIR DISOPROXIL FUMARATE
     Dosage: 300 MG, QOD
     Route: 048
     Dates: start: 20040801
  14. TRUVADA [Suspect]
     Active Substance: EMTRICITABINE\TENOFOVIR DISOPROXIL FUMARATE
     Indication: HIV INFECTION
     Dosage: 1 DF QD
     Route: 048
     Dates: start: 20090914, end: 20100126
  15. KALETRA [Concomitant]
     Active Substance: LOPINAVIR\RITONAVIR
  16. SEPTRA [Concomitant]
     Active Substance: SULFAMETHOXAZOLE\TRIMETHOPRIM
  17. INVIRASE [Concomitant]
     Active Substance: SAQUINAVIR MESYLATE
  18. RALTEGRAVIR. [Concomitant]
     Active Substance: RALTEGRAVIR
  19. CIALIS [Concomitant]
     Active Substance: TADALAFIL
  20. VICODIN [Concomitant]
     Active Substance: ACETAMINOPHEN\HYDROCODONE BITARTRATE
  21. COLACE [Concomitant]
     Active Substance: DOCUSATE SODIUM
  22. VITAMINS NOS [Concomitant]
     Active Substance: VITAMINS
  23. ACYCLOVIR [ACICLOVIR] [Concomitant]
     Active Substance: ACYCLOVIR
  24. PREZISTA [Concomitant]
     Active Substance: DARUNAVIR ETHANOLATE
  25. VIREAD [Suspect]
     Active Substance: TENOFOVIR DISOPROXIL FUMARATE
     Indication: HIV INFECTION
     Dosage: 300 MG, QD
     Route: 048
     Dates: start: 20020730, end: 20050901
  26. LISINOPRIL. [Concomitant]
     Active Substance: LISINOPRIL
  27. RITONAVIR. [Concomitant]
     Active Substance: RITONAVIR
  28. FAMOTIDINE. [Concomitant]
     Active Substance: FAMOTIDINE
  29. VIREAD [Suspect]
     Active Substance: TENOFOVIR DISOPROXIL FUMARATE
     Dosage: UNK
     Route: 048
  30. LORAZEPAM. [Concomitant]
     Active Substance: LORAZEPAM
  31. FORTOVASE [SAQUINAVIR] [Concomitant]
  32. ISENTRESS [Concomitant]
     Active Substance: RALTEGRAVIR POTASSIUM
  33. EPIVIR [Concomitant]
     Active Substance: LAMIVUDINE
  34. PREDNISONE. [Concomitant]
     Active Substance: PREDNISONE
  35. ASACOL [Concomitant]
     Active Substance: MESALAMINE
  36. VIRAMUNE [Concomitant]
     Active Substance: NEVIRAPINE

REACTIONS (18)
  - Emotional distress [Not Recovered/Not Resolved]
  - Pain [Not Recovered/Not Resolved]
  - Chronic kidney disease [Unknown]
  - Foot fracture [Unknown]
  - Osteonecrosis [Unknown]
  - Bone density decreased [Unknown]
  - Hip fracture [Unknown]
  - Fanconi syndrome acquired [Unknown]
  - Hand fracture [Unknown]
  - Anhedonia [Unknown]
  - Renal failure [Unknown]
  - Anxiety [Unknown]
  - Rib fracture [Unknown]
  - Osteoporosis [Unknown]
  - Foot fracture [Unknown]
  - Fracture [Unknown]
  - Economic problem [Not Recovered/Not Resolved]
  - Osteopenia [Unknown]

NARRATIVE: CASE EVENT DATE: 20031224
